FAERS Safety Report 14305874 (Version 1)
Quarter: 2017Q4

REPORT INFORMATION
  Report Type: Spontaneous
  Country: US (occurrence: US)
  Receive Date: 20171219
  Receipt Date: 20171219
  Transmission Date: 20180321
  Serious: No
  Sender: FDA-Public Use
  Company Number: US-DRREDDYS-USA/USA/17/0088154

PATIENT
  Age: 16 Year

DRUGS (1)
  1. OMEPRAZOLE. [Suspect]
     Active Substance: OMEPRAZOLE
     Indication: HYPERCHLORHYDRIA
     Route: 065
     Dates: start: 2017

REACTIONS (1)
  - Wrong technique in product usage process [Unknown]
